FAERS Safety Report 5638592-7 (Version None)
Quarter: 2008Q1

REPORT INFORMATION
  Report Type: 
  Country: None (occurrence: None)
  Receive Date: 20080226
  Receipt Date: 20070614
  Transmission Date: 20080703
  Serious: Yes (Other)
  Sender: FDA-Public Use
  Company Number: A0655272A

PATIENT
  Age: 34 Year
  Sex: Female

DRUGS (8)
  1. IMITREX [Suspect]
     Indication: MIGRAINE
     Dosage: 6MG AS REQUIRED
     Route: 058
  2. CONCURRENT MEDICATIONS [Concomitant]
  3. NORTRIPTYLINE HCL [Concomitant]
  4. TRAZODONE HCL [Concomitant]
  5. ZANTAC 150 [Concomitant]
  6. UNSPECIFIED MEDICATION [Concomitant]
  7. FIORICET [Concomitant]
  8. PHENERGAN HCL [Concomitant]

REACTIONS (1)
  - HEPATIC ENZYME INCREASED [None]
